FAERS Safety Report 15666063 (Version 1)
Quarter: 2018Q4

REPORT INFORMATION
  Report Type: Spontaneous
  Country: US (occurrence: US)
  Receive Date: 20181128
  Receipt Date: 20181128
  Transmission Date: 20190205
  Serious: Yes (Death, Hospitalization)
  Sender: FDA-Public Use
  Company Number: US-ASTRAZENECA-2018SF53296

PATIENT
  Age: 70 Year
  Sex: Male
  Weight: 84.8 kg

DRUGS (18)
  1. SEROQUEL [Suspect]
     Active Substance: QUETIAPINE FUMARATE
     Route: 048
     Dates: start: 20180906
  2. GOCOVRI [Suspect]
     Active Substance: AMANTADINE
     Indication: DYSKINESIA
     Route: 048
     Dates: start: 20180630, end: 20180706
  3. LEVOTHYROXINE. [Concomitant]
     Active Substance: LEVOTHYROXINE
  4. GOCOVRI [Suspect]
     Active Substance: AMANTADINE
     Indication: DYSKINESIA
     Route: 048
  5. SINEMET [Concomitant]
     Active Substance: CARBIDOPA\LEVODOPA
     Dosage: 25-100
  6. GABAPENTIN. [Concomitant]
     Active Substance: GABAPENTIN
  7. ACETAMINOPHEN. [Concomitant]
     Active Substance: ACETAMINOPHEN
  8. ASPIRIN. [Concomitant]
     Active Substance: ASPIRIN
  9. LORAZEPAM. [Concomitant]
     Active Substance: LORAZEPAM
  10. BUPROPION. [Concomitant]
     Active Substance: BUPROPION
  11. IBUPROFEN. [Concomitant]
     Active Substance: IBUPROFEN
  12. LEXAPRO [Concomitant]
     Active Substance: ESCITALOPRAM OXALATE
  13. GABAPENTIN. [Concomitant]
     Active Substance: GABAPENTIN
  14. GABAPENTIN. [Concomitant]
     Active Substance: GABAPENTIN
  15. COMTAN [Concomitant]
     Active Substance: ENTACAPONE
  16. RITALIN [Concomitant]
     Active Substance: METHYLPHENIDATE HYDROCHLORIDE
     Dates: start: 20180906
  17. EXELON [Suspect]
     Active Substance: RIVASTIGMINE TARTRATE
     Route: 065
     Dates: start: 20180609, end: 20180831
  18. LEVOTHYROXINE. [Concomitant]
     Active Substance: LEVOTHYROXINE

REACTIONS (13)
  - Dysstasia [Unknown]
  - Depression [Unknown]
  - Cardiac arrest [Fatal]
  - Anxiety [Unknown]
  - Agitation [Unknown]
  - Disorganised speech [Unknown]
  - Atelectasis [Unknown]
  - Differential white blood cell count abnormal [Unknown]
  - Gait inability [Unknown]
  - Paranoia [Unknown]
  - Mood altered [Unknown]
  - Memory impairment [Unknown]
  - Confusional state [Not Recovered/Not Resolved]

NARRATIVE: CASE EVENT DATE: 2018
